FAERS Safety Report 16344298 (Version 1)
Quarter: 2019Q2

REPORT INFORMATION
  Report Type: Report from Study
  Country: US (occurrence: US)
  Receive Date: 20190522
  Receipt Date: 20190522
  Transmission Date: 20190711
  Serious: Yes (Disabling, Other)
  Sender: FDA-Public Use
  Company Number: US-GILEAD-2019-0409203

PATIENT
  Age: 50 Year
  Sex: Female

DRUGS (2)
  1. RANOLAZINE. [Suspect]
     Active Substance: RANOLAZINE
     Dosage: 500 MG, BID
     Route: 048
     Dates: start: 2016
  2. RANOLAZINE. [Suspect]
     Active Substance: RANOLAZINE
     Indication: ANGINA PECTORIS
     Dosage: 1000 MG, BID
     Route: 048
     Dates: start: 2016

REACTIONS (4)
  - Ankle fracture [Unknown]
  - Chest pain [Not Recovered/Not Resolved]
  - Underdose [Not Recovered/Not Resolved]
  - Neuroprosthesis implantation [Unknown]

NARRATIVE: CASE EVENT DATE: 201802
